FAERS Safety Report 18489689 (Version 3)
Quarter: 2020Q4

REPORT INFORMATION
  Report Type: Report from Study
  Country: AU (occurrence: AU)
  Receive Date: 20201111
  Receipt Date: 20201120
  Transmission Date: 20210114
  Serious: Yes (Death, Hospitalization, Disabling, Other)
  Sender: FDA-Public Use
  Company Number: AU-GLAXOSMITHKLINE-AU2020GSK221666

PATIENT
  Age: 71 Year
  Sex: Male

DRUGS (8)
  1. RESPIRIN DROPS (HEPTAMINOL HYDROCHLORIDE) [Concomitant]
     Dosage: UNK
     Dates: start: 20201020
  2. COLOXYL + SENNA [Concomitant]
     Indication: CONSTIPATION
     Dosage: UNK
     Dates: end: 20200421
  3. BELANTAMAB MAFODOTIN. [Suspect]
     Active Substance: BELANTAMAB MAFODOTIN
     Dosage: UNK, CYC
     Route: 042
     Dates: start: 20200911, end: 20200911
  4. SPIRONOLACTONE. [Concomitant]
     Active Substance: SPIRONOLACTONE
     Dosage: 50 MG
     Route: 048
     Dates: end: 20201020
  5. BELANTAMAB MAFODOTIN. [Suspect]
     Active Substance: BELANTAMAB MAFODOTIN
     Indication: PLASMA CELL MYELOMA
     Dosage: UNK, CYC
     Route: 042
     Dates: start: 20200819
  6. METOPROLOL. [Concomitant]
     Active Substance: METOPROLOL
     Indication: HYPERTENSION
     Dosage: 25 MG, BID
     Route: 048
     Dates: end: 20201021
  7. PERINDOPRIL [Concomitant]
     Active Substance: PERINDOPRIL
     Indication: HYPERTENSION
     Dosage: 5 MG, SINGLE
     Route: 048
     Dates: end: 20201021
  8. ALLOPURINOL. [Concomitant]
     Active Substance: ALLOPURINOL
     Indication: PROPHYLAXIS
     Dosage: 300 MG, SINGLE
     Route: 048

REACTIONS (4)
  - Diverticulitis [Recovered/Resolved]
  - Muscle abscess [Recovered/Resolved]
  - Death [Fatal]
  - Pseudomonal bacteraemia [Recovered/Resolved]

NARRATIVE: CASE EVENT DATE: 20200823
